FAERS Safety Report 12668134 (Version 3)
Quarter: 2016Q3

REPORT INFORMATION
  Report Type: Report from Study
  Country: US (occurrence: US)
  Receive Date: 20160819
  Receipt Date: 20160909
  Transmission Date: 20161109
  Serious: Yes (Other)
  Sender: FDA-Public Use
  Company Number: US-GILEAD-2016-0224222

PATIENT
  Age: 68 Year
  Sex: Male
  Weight: 112 kg

DRUGS (9)
  1. AMBRISENTAN [Suspect]
     Active Substance: AMBRISENTAN
     Indication: PULMONARY HYPERTENSION
     Dosage: 10 MG, QD
     Route: 065
     Dates: start: 20110608
  2. TYVASO [Suspect]
     Active Substance: TREPROSTINIL
     Indication: PRODUCT USED FOR UNKNOWN INDICATION
     Dosage: UNK
     Route: 065
     Dates: start: 201605
  3. AMBRISENTAN [Suspect]
     Active Substance: AMBRISENTAN
     Indication: ESSENTIAL THROMBOCYTHAEMIA
  4. HYDREA [Concomitant]
     Active Substance: HYDROXYUREA
  5. LISINOPRIL. [Concomitant]
     Active Substance: LISINOPRIL
  6. RIOCIGUAT [Concomitant]
     Active Substance: RIOCIGUAT
  7. ATORVASTATIN [Concomitant]
     Active Substance: ATORVASTATIN
  8. AMBRISENTAN [Suspect]
     Active Substance: AMBRISENTAN
     Indication: EMBOLISM
  9. ADEMPAS [Concomitant]
     Active Substance: RIOCIGUAT

REACTIONS (6)
  - Fatigue [Not Recovered/Not Resolved]
  - Carotid artery stenosis [Unknown]
  - Dyspnoea [Unknown]
  - Somnolence [Unknown]
  - Thyroid mass [Unknown]
  - Cough [Not Recovered/Not Resolved]

NARRATIVE: CASE EVENT DATE: 201605
